FAERS Safety Report 8524328-9 (Version None)
Quarter: 2012Q3

REPORT INFORMATION
  Report Type: 
  Country: None (occurrence: None)
  Receive Date: 20120720
  Receipt Date: 20120717
  Transmission Date: 20120928
  Serious: Yes (Death)
  Sender: FDA-Public Use
  Company Number: DE-B.I. PHARMACEUTICALS,INC./RIDGEFIELD-2012-DE-01062DE

PATIENT
  Age: 89 Week
  Sex: Male

DRUGS (5)
  1. PANTOPRAZOLE [Concomitant]
  2. METOPROLOL SUCCINATE [Concomitant]
     Dosage: 1/3-0-0-1/3
  3. PRADAXA [Suspect]
     Indication: ATRIAL FIBRILLATION
     Dosage: 220 MG
  4. RAMIPRIL [Concomitant]
     Dosage: 1/2-0-0-0
  5. TORSEMIDE [Concomitant]

REACTIONS (3)
  - RECTAL HAEMORRHAGE [None]
  - HAEMATURIA [None]
  - HAEMORRHAGE [None]
